FAERS Safety Report 7632760-0 (Version None)
Quarter: 2011Q3

REPORT INFORMATION
  Report Type: 
  Country: None (occurrence: None)
  Receive Date: 20110725
  Receipt Date: 20101231
  Transmission Date: 20111222
  Serious: Yes (Other)
  Sender: FDA-Public Use
  Company Number: US-BRISTOL-MYERS SQUIBB COMPANY-15467772

PATIENT
  Age: 78 Year
  Sex: Male

DRUGS (3)
  1. COUMADIN [Suspect]
     Dosage: DOSE INCREASED TO 3 MG,2MG(NIGHT:6PM)
  2. GLIPIZIDE [Concomitant]
     Indication: DIABETES MELLITUS
  3. HYPERTENSION MEDICATION [Concomitant]

REACTIONS (2)
  - MEDICATION ERROR [None]
  - INTERNATIONAL NORMALISED RATIO DECREASED [None]
